FAERS Safety Report 15155573 (Version 1)
Quarter: 2018Q3

REPORT INFORMATION
  Report Type: Spontaneous
  Country: US (occurrence: US)
  Receive Date: 20180717
  Receipt Date: 20180717
  Transmission Date: 20181010
  Serious: No
  Sender: FDA-Public Use
  Company Number: US-BAYER-2018-134237

PATIENT
  Sex: Female

DRUGS (1)
  1. MIRALAX [Suspect]
     Active Substance: POLYETHYLENE GLYCOL 3350
     Indication: GASTROINTESTINAL DISORDER
     Dosage: UNK (1  TEASPOON ONCE DAILY FOR 7 DAYS DOSE)
     Route: 048

REACTIONS (3)
  - Flatulence [Unknown]
  - Underdose [Unknown]
  - Prescribed underdose [Unknown]
